FAERS Safety Report 10993202 (Version 2)
Quarter: 2015Q2

REPORT INFORMATION
  Report Type: Report from Study
  Country: CA (occurrence: CA)
  Receive Date: 20150407
  Receipt Date: 20150428
  Transmission Date: 20150821
  Serious: Yes (Other)
  Sender: FDA-Public Use
  Company Number: PHHY2014CA047249

PATIENT
  Age: 79 Year
  Sex: Male

DRUGS (2)
  1. SANDOSTATIN LAR DEPOT [Suspect]
     Active Substance: OCTREOTIDE ACETATE
     Indication: NEUROENDOCRINE TUMOUR
     Dosage: 30 MG, EVERY 4 WEEKS
     Route: 030
     Dates: start: 20140317
  2. SANDOSTATIN LAR DEPOT [Suspect]
     Active Substance: OCTREOTIDE ACETATE
     Dosage: 60 MG, EVERY 4 WEEKS
     Route: 030

REACTIONS (8)
  - Heart rate decreased [Unknown]
  - Injection site pain [Unknown]
  - Vertigo [Unknown]
  - Abdominal pain [Recovering/Resolving]
  - Diarrhoea [Unknown]
  - Blood pressure systolic increased [Unknown]
  - Malignant neoplasm progression [Unknown]
  - Blood glucose increased [Unknown]

NARRATIVE: CASE EVENT DATE: 2014
